FAERS Safety Report 6220525-6 (Version None)
Quarter: 2009Q2

REPORT INFORMATION
  Report Type: 
  Country: None (occurrence: None)
  Receive Date: 20090604
  Receipt Date: 20090521
  Transmission Date: 20091009
  Serious: Yes (Other)
  Sender: FDA-Public Use
  Company Number: US-WYE-H09439909

PATIENT
  Age: 59 Year
  Sex: Male

DRUGS (7)
  1. TORISEL [Suspect]
     Indication: RENAL CELL CARCINOMA
     Dosage: 25 MG 1X PER 1 WK, INTRAVENOUS ; 25 MG 1X PER 1 WK, INTRAVENOUS
     Route: 042
     Dates: start: 20090206, end: 20090501
  2. TORISEL [Suspect]
     Indication: RENAL CELL CARCINOMA
     Dosage: 25 MG 1X PER 1 WK, INTRAVENOUS ; 25 MG 1X PER 1 WK, INTRAVENOUS
     Route: 042
     Dates: start: 20090526
  3. PROCHLORPERAZINE MALEATE [Concomitant]
  4. WARFARIN SODIUM [Concomitant]
  5. FLOMAX [Concomitant]
  6. NEXIUM [Concomitant]
  7. WELLBUTRIN [Concomitant]

REACTIONS (1)
  - BLOOD PHOSPHORUS INCREASED [None]
